FAERS Safety Report 22615679 (Version 5)
Quarter: 2023Q4

REPORT INFORMATION
  Report Type: Other
  Country: IT (occurrence: None)
  Receive Date: 20230619
  Receipt Date: 20231206
  Transmission Date: 20240109
  Serious: Yes (Hospitalization)
  Sender: FDA-Public Use
  Company Number: IT-ROCHE-3357717

PATIENT
  Age: 77 Year
  Sex: Female
  Weight: 78 kg

DRUGS (9)
  1. MOSUNETUZUMAB [Suspect]
     Active Substance: MOSUNETUZUMAB
     Indication: Follicular lymphoma
     Dosage: (1/2/60/30 MG)?CYCLE 9?,
     Route: 065
     Dates: start: 20221018, end: 20230504
  2. MOSUNETUZUMAB [Suspect]
     Active Substance: MOSUNETUZUMAB
     Dosage: ,
     Route: 065
     Dates: start: 20221019
  3. SIMVASTATIN [Concomitant]
     Active Substance: SIMVASTATIN
  4. ACYCLOVIR [Concomitant]
     Active Substance: ACYCLOVIR
  5. ALLOPURINOL [Concomitant]
     Active Substance: ALLOPURINOL
  6. DELAPRIL HYDROCHLORIDE\INDAPAMIDE [Concomitant]
     Active Substance: DELAPRIL HYDROCHLORIDE\INDAPAMIDE
  7. ESOMEPRAZOLE [Concomitant]
     Active Substance: ESOMEPRAZOLE
  8. BACTRIM [Concomitant]
     Active Substance: SULFAMETHOXAZOLE\TRIMETHOPRIM
     Dosage: EVERY OTHER DAY
  9. INDAPAMIDE [Concomitant]
     Active Substance: INDAPAMIDE

REACTIONS (2)
  - Guillain-Barre syndrome [Not Recovered/Not Resolved]
  - Pleural effusion [Unknown]

NARRATIVE: CASE EVENT DATE: 20230509
